FAERS Safety Report 6806109-7 (Version None)
Quarter: 2010Q2

REPORT INFORMATION
  Report Type: 
  Country: None (occurrence: None)
  Receive Date: 20100629
  Receipt Date: 20071230
  Transmission Date: 20101027
  Serious: Yes (Other)
  Sender: FDA-Public Use
  Company Number: US-PFIZER INC-2008000107

PATIENT
  Sex: Male

DRUGS (1)
  1. VIAGRA [Suspect]
     Dates: start: 20071201

REACTIONS (3)
  - ERECTION INCREASED [None]
  - INSOMNIA [None]
  - PAINFUL ERECTION [None]
